FAERS Safety Report 20156020 (Version 1)
Quarter: 2021Q4

REPORT INFORMATION
  Report Type: Spontaneous
  Country: US (occurrence: US)
  Receive Date: 20211207
  Receipt Date: 20211207
  Transmission Date: 20220303
  Serious: Yes (Death)
  Sender: FDA-Public Use
  Company Number: US-AMNEAL PHARMACEUTICALS-2021-AMRX-04793

PATIENT
  Age: 55 Year
  Sex: Male

DRUGS (1)
  1. METHITEST [Suspect]
     Active Substance: METHYLTESTOSTERONE
     Indication: Androgen deficiency
     Dosage: UNK
     Route: 065

REACTIONS (2)
  - Hepatocellular carcinoma [Fatal]
  - Metastases to lung [Fatal]
